FAERS Safety Report 17270237 (Version 1)
Quarter: 2020Q1

REPORT INFORMATION
  Report Type: Spontaneous
  Country: US (occurrence: US)
  Receive Date: 20200114
  Receipt Date: 20200114
  Transmission Date: 20200409
  Serious: Yes (Death)
  Sender: FDA-Public Use
  Company Number: US-MALLINCKRODT-T202000150

PATIENT
  Age: 19 Year
  Sex: Male

DRUGS (3)
  1. BORTEZOMIB. [Concomitant]
     Active Substance: BORTEZOMIB
     Indication: GRAFT VERSUS HOST DISEASE IN LUNG
     Dosage: UNK, WEEKLY DOSES FOR 12 WEEKS, RANGING FROM 0.2 MG TO 1.3MG
     Route: 065
  2. UVADEX [Suspect]
     Active Substance: METHOXSALEN
     Indication: GRAFT VERSUS HOST DISEASE IN LUNG
     Dosage: UNK (EXTRACORPOREAL )
     Route: 050
  3. SIROLIMUS. [Concomitant]
     Active Substance: SIROLIMUS
     Indication: GRAFT VERSUS HOST DISEASE IN LUNG
     Route: 065

REACTIONS (2)
  - Graft versus host disease in lung [Fatal]
  - Product use in unapproved indication [Unknown]
